FAERS Safety Report 15157423 (Version 1)
Quarter: 2018Q4

REPORT INFORMATION
  Report Type: Spontaneous
  Country: US (occurrence: US)
  Receive Date: 20180718
  Receipt Date: 20180718
  Transmission Date: 20190204
  Serious: No
  Sender: FDA-Public Use
  Company Number: US-CEDIPROF, INC.-2052292

PATIENT
  Age: 53 Year
  Sex: Female
  Weight: 109.09 kg

DRUGS (1)
  1. LEVO-T [Suspect]
     Active Substance: LEVOTHYROXINE SODIUM
     Route: 048

REACTIONS (5)
  - Headache [Not Recovered/Not Resolved]
  - Ear discomfort [Not Recovered/Not Resolved]
  - Nausea [Not Recovered/Not Resolved]
  - Swollen tongue [Not Recovered/Not Resolved]
  - Oropharyngeal pain [Not Recovered/Not Resolved]
